FAERS Safety Report 17220585 (Version 4)
Quarter: 2020Q1

REPORT INFORMATION
  Report Type: Spontaneous
  Country: DE (occurrence: DE)
  Receive Date: 20191231
  Receipt Date: 20200206
  Transmission Date: 20200409
  Serious: Yes (Hospitalization)
  Sender: FDA-Public Use
  Company Number: DE-MYLANLABS-2019M1132033

PATIENT
  Age: 16 Year
  Sex: Female
  Weight: 56 kg

DRUGS (4)
  1. LEVETIRACETAM. [Suspect]
     Active Substance: LEVETIRACETAM
     Dosage: 2.4 MG, QD
     Route: 048
     Dates: start: 20190605
  2. ORFIRIL [Concomitant]
     Active Substance: VALPROATE SODIUM
     Indication: EPILEPSY
     Dosage: 600 MG, QD/DAILY DOSE: 600 MG MILLGRAM(S) EVERY DAYS 2 SEPARATED DOSES
     Route: 048
  3. LEVETIRACETAM. [Suspect]
     Active Substance: LEVETIRACETAM
     Indication: EPILEPSY
     Dosage: DAILY DOSE: 2400 MG MILLGRAM(S) EVERY DAYS 2 SEPARATED DOSES
     Route: 048
     Dates: start: 20190605
  4. PETNIDAN [Suspect]
     Active Substance: ETHOSUXIMIDE
     Indication: EPILEPSY
     Dosage: 500 MG, QD/DAILY DOSE: 500 MG MILLGRAM(S) EVERY DAYS 2 SEPARATED DOSES
     Route: 048
     Dates: start: 20190605

REACTIONS (3)
  - Dizziness [Unknown]
  - Extrasystoles [Unknown]
  - Headache [Unknown]

NARRATIVE: CASE EVENT DATE: 20190605
